FAERS Safety Report 7941165-4 (Version None)
Quarter: 2011Q4

REPORT INFORMATION
  Report Type: 
  Country: None (occurrence: None)
  Receive Date: 20111122
  Receipt Date: 20111107
  Transmission Date: 20120403
  Serious: Yes (Hospitalization)
  Sender: FDA-Public Use
  Company Number: DSU-2011-08284

PATIENT
  Age: 62 Year
  Sex: Female
  Weight: 63.5036 kg

DRUGS (4)
  1. BENICAR [Suspect]
     Indication: HYPERTENSION
     Dosage: 20 MG (20 MG,QD), PER ORAL
     Route: 048
  2. ESTRADIOL (ESTRADIOL)(TABLET)(ESTRADIOL) [Concomitant]
  3. PROGESTERONE (PROGESTERONE)(PROGESTERONE) [Concomitant]
  4. AVEENO (AVENA SATIVA FLUID EXTRACT)(AVENA SATIVA FLUID EXTRACT) [Suspect]
     Indication: RASH
     Dosage: TOPICAL
     Route: 061
     Dates: start: 20110101

REACTIONS (3)
  - EXFOLIATIVE RASH [None]
  - MUSCLE ABSCESS [None]
  - APPLICATION SITE PAIN [None]
